FAERS Safety Report 15131707 (Version 1)
Quarter: 2018Q3

REPORT INFORMATION
  Report Type: Spontaneous
  Country: US (occurrence: US)
  Receive Date: 20180615
  Receipt Date: 20180615
  Transmission Date: 20181010
  Serious: Yes (Disabling)
  Sender: FDA-Public Use
  Company Number: None

PATIENT
  Age: 45 Year
  Sex: Female
  Weight: 50.4 kg

DRUGS (5)
  1. VITAMIN D W/ K [Concomitant]
  2. CO?Q?10 SUPPLEMENTS [Concomitant]
  3. PICATO [Suspect]
     Active Substance: INGENOL MEBUTATE
     Indication: ACTINIC KERATOSIS
     Dosage: QUANTITY:2 MINI BOTTLES; AT BEDTIME?
     Route: 061
     Dates: start: 20180613, end: 20180615
  4. MULTIVITAMIN [Concomitant]
     Active Substance: VITAMINS
  5. PROGESTERONE SUPPLEMENTS (PILL) [Concomitant]

REACTIONS (2)
  - Blister [None]
  - Dermatitis contact [None]

NARRATIVE: CASE EVENT DATE: 20180613
